FAERS Safety Report 4628520-5 (Version None)
Quarter: 2005Q2

REPORT INFORMATION
  Report Type: 
  Country: None (occurrence: None)
  Receive Date: 20050404
  Receipt Date: 20050329
  Transmission Date: 20051028
  Serious: Yes (Hospitalization)
  Sender: FDA-Public Use
  Company Number: 2005-125845-NL

PATIENT
  Age: 30 Year
  Sex: Female

DRUGS (3)
  1. MIRTAZAPINE [Suspect]
     Indication: DEPRESSION
     Dosage: 32 DF ORAL
     Route: 048
     Dates: start: 20050101, end: 20050301
  2. LORAZEPAM [Concomitant]
  3. VITAMIN B COMPLEX CAP [Concomitant]

REACTIONS (3)
  - DELIRIUM [None]
  - OVERDOSE [None]
  - REFUSAL OF TREATMENT BY PATIENT [None]
